FAERS Safety Report 4577526-3 (Version None)
Quarter: 2005Q1

REPORT INFORMATION
  Report Type: 
  Country: None (occurrence: None)
  Receive Date: 20050208
  Receipt Date: 20050127
  Transmission Date: 20050727
  Serious: Yes (Other)
  Sender: FDA-Public Use
  Company Number: 200510084GDS

PATIENT
  Age: 75 Year
  Sex: Male

DRUGS (9)
  1. MOXIFLOXACIN HCL [Suspect]
     Indication: BRONCHITIS CHRONIC
     Dosage: 400 MG, TOTAL DAILY, ORAL
     Route: 048
  2. MOXIFLOXACIN HCL [Suspect]
     Indication: PNEUMONIA BACTERIAL
     Dosage: 400 MG, TOTAL DAILY, ORAL
     Route: 048
  3. WARFARIN SODIUM [Suspect]
     Indication: ATRIAL FIBRILLATION
     Dosage: SEE IMAGE
  4. SOTALOL HCL [Concomitant]
  5. BUDESONIDE [Concomitant]
  6. METHYLPREDNISOLONE [Concomitant]
  7. ALBUTEROL [Concomitant]
  8. IPATROPIUM BROMIDE [Concomitant]
  9. OXAZEPAM [Concomitant]

REACTIONS (2)
  - DRUG INTERACTION [None]
  - INTERNATIONAL NORMALISED RATIO INCREASED [None]
